FAERS Safety Report 8440721-7 (Version None)
Quarter: 2012Q2

REPORT INFORMATION
  Report Type: 
  Country: None (occurrence: None)
  Receive Date: 20120615
  Receipt Date: 20120607
  Transmission Date: 20120825
  Serious: Yes (Other)
  Sender: FDA-Public Use
  Company Number: US-JNJFOC-20120604309

PATIENT
  Age: 54 Year
  Sex: Male

DRUGS (1)
  1. XARELTO [Suspect]
     Indication: ATRIAL FIBRILLATION
     Route: 048
     Dates: start: 20120501

REACTIONS (5)
  - CONTUSION [None]
  - HAEMORRHAGE [None]
  - OEDEMA PERIPHERAL [None]
  - EYE HAEMORRHAGE [None]
  - EPISTAXIS [None]
